FAERS Safety Report 7988122-X (Version None)
Quarter: 2011Q4

REPORT INFORMATION
  Report Type: 
  Country: None (occurrence: None)
  Receive Date: 20111216
  Receipt Date: 20111107
  Transmission Date: 20120403
  Serious: No
  Sender: FDA-Public Use
  Company Number: US-ABBOTT-11P-163-0804277-00

PATIENT
  Age: 45 Year
  Sex: Female
  Weight: 59 kg

DRUGS (4)
  1. PROMETRIUM [Suspect]
     Dosage: DAILY DOSE:  UNKNOWN
     Route: 065
     Dates: start: 20110101
  2. CLIMARA [Concomitant]
     Indication: PRODUCT USED FOR UNKNOWN INDICATION
     Dosage: DAILY DOSE:  UNKNOWN
     Route: 065
  3. SYNTHROID [Concomitant]
     Indication: PRODUCT USED FOR UNKNOWN INDICATION
     Dosage: DAILY DOSE:  UNKNOWN
     Route: 065
  4. PROMETRIUM [Suspect]
     Indication: PROGESTERONE
     Dosage: DAILY DOSE:  UNKNOWN, AS USED: 200 MILLIGRAM(S), 10 DAYS MONTHLY
     Route: 065

REACTIONS (2)
  - INSOMNIA [None]
  - HYPERSENSITIVITY [None]
